FAERS Safety Report 14492204 (Version 1)
Quarter: 2018Q1

REPORT INFORMATION
  Report Type: Spontaneous
  Country: US (occurrence: US)
  Receive Date: 20180206
  Receipt Date: 20180206
  Transmission Date: 20180509
  Serious: Yes (Other)
  Sender: FDA-Public Use
  Company Number: US-ASTRAZENECA-2018SE12024

PATIENT
  Age: 51 Year
  Sex: Female
  Weight: 75 kg

DRUGS (56)
  1. PEPCID [Concomitant]
     Active Substance: FAMOTIDINE
     Route: 048
     Dates: start: 20150630
  2. CARVEDILOL. [Concomitant]
     Active Substance: CARVEDILOL
     Route: 048
     Dates: start: 20150713, end: 20150916
  3. CARVEDILOL. [Concomitant]
     Active Substance: CARVEDILOL
     Route: 048
     Dates: start: 20151214
  4. CYCLOSPORINE. [Concomitant]
     Active Substance: CYCLOSPORINE
     Indication: SYSTEMIC LUPUS ERYTHEMATOSUS
     Dosage: 1 % AT 1 DROP TWICE DAILY
     Dates: start: 20160804, end: 20161107
  5. CYCLOBENZAPRINE. [Concomitant]
     Active Substance: CYCLOBENZAPRINE
     Dosage: 5MG AS NEEDED
     Route: 048
     Dates: start: 20170324
  6. MAGNESIUM OXIDE. [Concomitant]
     Active Substance: MAGNESIUM OXIDE
     Dates: start: 20170424
  7. BOSUTINIB [Suspect]
     Active Substance: BOSUTINIB
     Indication: CHRONIC MYELOID LEUKAEMIA
     Route: 048
     Dates: start: 20150618
  8. BOSUTINIB [Suspect]
     Active Substance: BOSUTINIB
     Indication: CHRONIC MYELOID LEUKAEMIA
     Route: 048
     Dates: start: 20160418
  9. GABAPENTIN. [Concomitant]
     Active Substance: GABAPENTIN
     Indication: HERPES ZOSTER
     Route: 048
     Dates: start: 20151105
  10. HYDROXYUREA. [Concomitant]
     Active Substance: HYDROXYUREA
     Indication: CHRONIC MYELOID LEUKAEMIA
     Route: 048
     Dates: start: 20150511, end: 20150622
  11. PREVACID [Concomitant]
     Active Substance: LANSOPRAZOLE
     Indication: GASTROOESOPHAGEAL REFLUX DISEASE
     Route: 048
  12. TRAMADOL. [Concomitant]
     Active Substance: TRAMADOL
     Dosage: 50 MG AS NEEDED
     Route: 048
     Dates: start: 20160511, end: 20160518
  13. MYCOPHENOLATE MOFETIL. [Concomitant]
     Active Substance: MYCOPHENOLATE MOFETIL
     Indication: SYSTEMIC LUPUS ERYTHEMATOSUS
     Route: 048
     Dates: start: 20160708
  14. CYCLOSPORINE. [Concomitant]
     Active Substance: CYCLOSPORINE
     Indication: SYSTEMIC LUPUS ERYTHEMATOSUS
     Dosage: 1% TWICE PER DAY
     Dates: start: 20160414
  15. VIGAMOX [Concomitant]
     Active Substance: MOXIFLOXACIN HYDROCHLORIDE
     Indication: SYSTEMIC LUPUS ERYTHEMATOSUS
     Dosage: 1 DROPS TWICE DAILY
     Dates: start: 20170317
  16. LISINOPRIL. [Suspect]
     Active Substance: LISINOPRIL
     Indication: CARDIAC FAILURE
     Route: 048
  17. GABAPENTIN. [Concomitant]
     Active Substance: GABAPENTIN
     Indication: HERPES ZOSTER
     Route: 048
     Dates: start: 20131020, end: 20151104
  18. BENADRYL [Concomitant]
     Active Substance: DIPHENHYDRAMINE HYDROCHLORIDE
     Route: 048
  19. FERROUS SULFATE. [Concomitant]
     Active Substance: FERROUS SULFATE
     Route: 048
     Dates: start: 20160418
  20. LISINOPRIL. [Concomitant]
     Active Substance: LISINOPRIL
     Indication: CARDIAC FAILURE
     Route: 048
     Dates: start: 20151012
  21. IBUPROFEN. [Concomitant]
     Active Substance: IBUPROFEN
     Dosage: 600 MG AS NEEDED
     Dates: start: 20121214
  22. FAMOTIDINE. [Concomitant]
     Active Substance: FAMOTIDINE
     Indication: GASTROOESOPHAGEAL REFLUX DISEASE
     Dates: start: 20160502, end: 20160615
  23. METHYLPREDNISOLONE. [Concomitant]
     Active Substance: METHYLPREDNISOLONE
     Dosage: 1% OPHTHALMIC SOLUTION AT 1 DROPS OCULAR/OPHTHALMIC FOUR TIMES DAILY
     Dates: start: 20161229
  24. BOSUTINIB [Suspect]
     Active Substance: BOSUTINIB
     Indication: CHRONIC MYELOID LEUKAEMIA
     Route: 048
     Dates: start: 20170719
  25. LOTEPREDNOL [Concomitant]
     Active Substance: LOTEPREDNOL
     Dosage: 1 DROP FOUR TIMES DAILY
     Dates: start: 20160225
  26. CEFALEXIN [Concomitant]
     Active Substance: CEPHALEXIN
     Route: 048
     Dates: start: 20160514, end: 20160526
  27. ACYCLOVIR. [Concomitant]
     Active Substance: ACYCLOVIR
     Indication: HERPES ZOSTER
     Route: 048
     Dates: start: 20131018, end: 20160520
  28. PREDNISONE. [Concomitant]
     Active Substance: PREDNISONE
     Route: 048
     Dates: start: 20160426, end: 20160615
  29. PREDNISONE. [Concomitant]
     Active Substance: PREDNISONE
     Route: 048
     Dates: start: 20161021
  30. TRAMADOL. [Concomitant]
     Active Substance: TRAMADOL
     Route: 048
  31. TRAMADOL. [Concomitant]
     Active Substance: TRAMADOL
     Dosage: 50MG ORAL Q6H
     Route: 048
     Dates: start: 20161107
  32. ONDANSETRON [Concomitant]
     Active Substance: ONDANSETRON
     Dosage: 4 MG AS NEEDED
     Route: 048
     Dates: start: 20160603
  33. CYCLOSPORINE. [Concomitant]
     Active Substance: CYCLOSPORINE
     Indication: SYSTEMIC LUPUS ERYTHEMATOSUS
     Dosage: 1 GTT TWICE DAILY
     Dates: start: 20150604, end: 20150902
  34. TRIAMCINOLONE [Concomitant]
     Active Substance: TRIAMCINOLONE
     Dosage: 0.1% TOPICAL OINTMENT AT 1 APP TOPICAL EVERY DAY
     Dates: start: 20171003
  35. PREVACID [Concomitant]
     Active Substance: LANSOPRAZOLE
     Indication: GASTROOESOPHAGEAL REFLUX DISEASE
     Route: 048
     Dates: start: 20150518, end: 20150618
  36. BENADRYL [Concomitant]
     Active Substance: DIPHENHYDRAMINE HYDROCHLORIDE
     Route: 048
     Dates: start: 20150630, end: 20150815
  37. MEDROL DOSE PACK [Concomitant]
     Active Substance: METHYLPREDNISOLONE
     Dosage: 4 MG (PER LABELING)
     Route: 048
     Dates: start: 20150630
  38. CYCLOSPORINE. [Concomitant]
     Active Substance: CYCLOSPORINE
     Indication: SYSTEMIC LUPUS ERYTHEMATOSUS
     Dates: end: 20160225
  39. OMEPRAZOLE. [Suspect]
     Active Substance: OMEPRAZOLE
     Indication: GASTROOESOPHAGEAL REFLUX DISEASE
     Route: 048
     Dates: start: 20160603
  40. BOSUTINIB [Suspect]
     Active Substance: BOSUTINIB
     Indication: CHRONIC MYELOID LEUKAEMIA
     Route: 048
  41. HYDROXYCHLOROQUINE [Concomitant]
     Active Substance: HYDROXYCHLOROQUINE
     Indication: SYSTEMIC LUPUS ERYTHEMATOSUS
     Route: 048
     Dates: start: 20170501
  42. BENADRYL [Concomitant]
     Active Substance: DIPHENHYDRAMINE HYDROCHLORIDE
     Route: 048
     Dates: start: 20150629, end: 20150630
  43. CARVEDILOL. [Concomitant]
     Active Substance: CARVEDILOL
     Route: 048
     Dates: start: 20150917, end: 20151209
  44. OFLOXACIN. [Concomitant]
     Active Substance: OFLOXACIN
     Dosage: 1 DROP TWICE DAILY
     Route: 048
     Dates: start: 20160804
  45. DOXYCYCLINE. [Concomitant]
     Active Substance: DOXYCYCLINE
     Indication: SYSTEMIC LUPUS ERYTHEMATOSUS
     Dates: start: 20150917, end: 20160801
  46. METHOTREXATE. [Concomitant]
     Active Substance: METHOTREXATE
     Indication: SYSTEMIC LUPUS ERYTHEMATOSUS
     Dosage: 10MG PO (BY MOUTH) WEEKLY
     Route: 048
     Dates: start: 20170224, end: 20170629
  47. MAGNESIUM SULFATE. [Concomitant]
     Active Substance: MAGNESIUM SULFATE
     Dates: start: 20170425
  48. CEFALEXIN [Concomitant]
     Active Substance: CEPHALEXIN
     Route: 048
  49. ACYCLOVIR. [Concomitant]
     Active Substance: ACYCLOVIR
     Indication: HERPES ZOSTER
     Route: 048
  50. AMITRIPTYLINE [Concomitant]
     Active Substance: AMITRIPTYLINE
     Indication: ANXIETY
     Route: 048
     Dates: start: 20120501
  51. ALLOPURINOL. [Concomitant]
     Active Substance: ALLOPURINOL
     Indication: CHRONIC MYELOID LEUKAEMIA
     Dates: start: 20150508, end: 20150622
  52. LOPERAMIDE [Concomitant]
     Active Substance: LOPERAMIDE
     Dosage: 4 MG PRN AS NEEDED
     Dates: start: 20150618
  53. HYDROXYUREA. [Concomitant]
     Active Substance: HYDROXYUREA
     Indication: CHRONIC MYELOID LEUKAEMIA
     Route: 048
  54. FAMOTIDINE. [Concomitant]
     Active Substance: FAMOTIDINE
     Indication: SYSTEMIC LUPUS ERYTHEMATOSUS
     Dates: start: 20160502, end: 20160615
  55. VORICONAZOLE. [Concomitant]
     Active Substance: VORICONAZOLE
     Dates: start: 20160506, end: 20160520
  56. COLESTIPOL [Concomitant]
     Active Substance: COLESTIPOL
     Dates: start: 20170616, end: 20170720

REACTIONS (1)
  - Hypomagnesaemia [Recovered/Resolved]

NARRATIVE: CASE EVENT DATE: 20170424
